FAERS Safety Report 13403232 (Version 1)
Quarter: 2017Q2

REPORT INFORMATION
  Report Type: Spontaneous
  Country: US (occurrence: US)
  Receive Date: 20170404
  Receipt Date: 20170404
  Transmission Date: 20170830
  Serious: No
  Sender: FDA-Public Use
  Company Number: US-ROCHE-1761195

PATIENT
  Sex: Female

DRUGS (2)
  1. PERJETA [Suspect]
     Active Substance: PERTUZUMAB
     Indication: BREAST CANCER
     Dosage: EVERY 2 TO 3 WEEKS FOR 18 CYCLES
     Route: 065
  2. KADCYLA [Suspect]
     Active Substance: ADO-TRASTUZUMAB EMTANSINE
     Indication: BREAST CANCER
     Dosage: EVERY 2 TO 3 WEEKS FOR 18 CYCLES
     Route: 065

REACTIONS (2)
  - Tremor [Recovered/Resolved]
  - Viral upper respiratory tract infection [Recovered/Resolved]
